FAERS Safety Report 7920162-9 (Version None)
Quarter: 2011Q4

REPORT INFORMATION
  Report Type: 
  Country: None (occurrence: None)
  Receive Date: 20111117
  Receipt Date: 20111107
  Transmission Date: 20120403
  Serious: Yes (Hospitalization)
  Sender: FDA-Public Use
  Company Number: US-BAYER-2011-032846

PATIENT
  Sex: Female

DRUGS (6)
  1. YAZ [Suspect]
     Dosage: UNK
     Dates: start: 20080101, end: 20080101
  2. YASMIN [Suspect]
     Dosage: UNK
     Dates: start: 20080101, end: 20080101
  3. ALBUTEROL [Concomitant]
  4. IBUPROFEN (ADVIL) [Concomitant]
  5. EXCEDRIN [ACETYLSALICYLIC ACID,CAFFEINE,PARACETAMOL,SALICYLAMIDE] [Concomitant]
  6. SINGULAIR [Concomitant]

REACTIONS (7)
  - CHOLECYSTITIS CHRONIC [None]
  - MENTAL DISORDER [None]
  - APPENDICECTOMY [None]
  - PAIN [None]
  - CHOLECYSTECTOMY [None]
  - APPENDICITIS [None]
  - INJURY [None]
